FAERS Safety Report 17111324 (Version 1)
Quarter: 2019Q4

REPORT INFORMATION
  Report Type: Spontaneous
  Country: PT (occurrence: PT)
  Receive Date: 20191204
  Receipt Date: 20191204
  Transmission Date: 20200122
  Serious: Yes (Other)
  Sender: FDA-Public Use
  Company Number: PT-009507513-1911PRT010544

PATIENT
  Age: 30 Year
  Sex: Female

DRUGS (1)
  1. IMPLANON NXT [Suspect]
     Active Substance: ETONOGESTREL
     Indication: CONTRACEPTIVE IMPLANT
     Dosage: 68 MILLIGRAM, 1 IMPLANT UP TO THREE YEARS
     Route: 058
     Dates: start: 20190901

REACTIONS (10)
  - Mood swings [Unknown]
  - Vaginal haemorrhage [Unknown]
  - Dizziness [Unknown]
  - Nausea [Unknown]
  - Hot flush [Unknown]
  - Headache [Unknown]
  - Tremor [Unknown]
  - Application site hypoaesthesia [Unknown]
  - Acne [Unknown]
  - Fatigue [Unknown]

NARRATIVE: CASE EVENT DATE: 20190901
